FAERS Safety Report 9800188 (Version 1)
Quarter: 2014Q1

REPORT INFORMATION
  Report Type: Spontaneous
  Country: FI (occurrence: FI)
  Receive Date: 20140106
  Receipt Date: 20140106
  Transmission Date: 20141002
  Serious: Yes (Other)
  Sender: FDA-Public Use
  Company Number: FI-ABBVIE-14P-055-1185299-00

PATIENT
  Age: 76 Year
  Sex: Male

DRUGS (2)
  1. PROCREN DEPOT [Suspect]
     Indication: PROSTATE CANCER
     Dates: start: 200703
  2. KLEXANE [Concomitant]
     Indication: THROMBOSIS PROPHYLAXIS
     Dosage: UNDER SKIN OF ABDOMEN
     Route: 058
     Dates: start: 2013

REACTIONS (2)
  - Hip arthroplasty [Unknown]
  - Hip arthroplasty [Unknown]
